FAERS Safety Report 9507918 (Version 1)
Quarter: 2013Q1

REPORT INFORMATION
  Report Type: Spontaneous
  Country: US (occurrence: None)
  Receive Date: 20130305
  Receipt Date: 20130305
  Transmission Date: 20140127
  Serious: No
  Sender: FDA-Public Use
  Company Number: 163-21880-11093101

PATIENT
  Age: 65 Year
  Sex: Female

DRUGS (1)
  1. REVLIMID [Suspect]
     Indication: PLASMA CELL MYELOMA
     Dosage: 10MG, QHS, PO
     Route: 048
     Dates: start: 20111114, end: 201112

REACTIONS (5)
  - Diarrhoea [None]
  - Rash [None]
  - Pruritus [None]
  - Pain [None]
  - Constipation [None]
